FAERS Safety Report 12936613 (Version 2)
Quarter: 2016Q4

REPORT INFORMATION
  Report Type: Spontaneous
  Country: MY (occurrence: MY)
  Receive Date: 20161114
  Receipt Date: 20161213
  Transmission Date: 20170207
  Serious: Yes (Other)
  Sender: FDA-Public Use
  Company Number: ALCN2016MY007420

PATIENT
  Age: 49 Year
  Sex: Male

DRUGS (5)
  1. GENTAMICIN. [Suspect]
     Active Substance: GENTAMICIN
     Indication: KERATITIS BACTERIAL
     Dosage: 1 DF, QH
     Route: 047
  2. MOXIFLOXACIN. [Suspect]
     Active Substance: MOXIFLOXACIN
     Indication: KERATITIS BACTERIAL
     Dosage: 1 DF, QH
     Route: 047
  3. VITAMIN C [Concomitant]
     Active Substance: ASCORBIC ACID
     Indication: KERATITIS BACTERIAL
     Dosage: 1 G, QD
     Route: 048
  4. HOMATROPINE HBR A-HOMA+ [Suspect]
     Active Substance: HOMATROPINE HYDROBROMIDE
     Indication: KERATITIS BACTERIAL
     Dosage: 1 DF, TID
     Route: 047
  5. DOXYCYCLINE. [Suspect]
     Active Substance: DOXYCYCLINE
     Indication: KERATITIS BACTERIAL
     Dosage: 100 MG, QD
     Route: 048

REACTIONS (8)
  - Necrotising scleritis [Recovered/Resolved with Sequelae]
  - Ulcerative keratitis [Recovered/Resolved]
  - Scleral thinning [Recovering/Resolving]
  - Hypoaesthesia eye [Unknown]
  - Uveal prolapse [Unknown]
  - Visual acuity reduced [Unknown]
  - Condition aggravated [Recovered/Resolved with Sequelae]
  - Corneal perforation [Recovering/Resolving]
